FAERS Safety Report 6570438-5 (Version None)
Quarter: 2010Q1

REPORT INFORMATION
  Report Type: 
  Country: None (occurrence: None)
  Receive Date: 20100204
  Receipt Date: 20090515
  Transmission Date: 20100710
  Serious: No
  Sender: FDA-Public Use
  Company Number: A0784595A

PATIENT
  Age: 75 Year
  Sex: Female

DRUGS (4)
  1. ARIXTRA [Suspect]
     Indication: FACTOR V LEIDEN MUTATION
     Dosage: 10MG PER DAY
     Route: 058
     Dates: start: 20090416
  2. DIOVAN [Concomitant]
  3. CARVEDILOL [Concomitant]
  4. TYLENOL-500 [Concomitant]

REACTIONS (6)
  - CONSTIPATION [None]
  - FEELING ABNORMAL [None]
  - FEELING HOT [None]
  - INFLUENZA LIKE ILLNESS [None]
  - INSOMNIA [None]
  - PAIN [None]
